FAERS Safety Report 9458208 (Version 3)
Quarter: 2014Q1

REPORT INFORMATION
  Report Type: Report from Study
  Country: JP (occurrence: JP)
  Receive Date: 20130814
  Receipt Date: 20140130
  Transmission Date: 20141002
  Serious: Yes (Hospitalization)
  Sender: FDA-Public Use
  Company Number: JP-PFIZER INC-2013100821

PATIENT
  Age: 56 Year
  Sex: Male
  Weight: 53 kg

DRUGS (2)
  1. XALKORI [Suspect]
     Indication: NON-SMALL CELL LUNG CANCER
     Dosage: 250 MG, 2X/DAY (500 MG DAILY)
     Route: 048
     Dates: start: 20130206, end: 20130212
  2. NEXIUM [Interacting]
     Dosage: 20 MG, 1X/DAY
     Route: 048
     Dates: start: 20130205

REACTIONS (2)
  - Drug interaction [Recovered/Resolved with Sequelae]
  - Hepatic enzyme increased [Recovered/Resolved with Sequelae]
